FAERS Safety Report 8341473-1 (Version None)
Quarter: 2012Q2

REPORT INFORMATION
  Report Type: 
  Country: None (occurrence: None)
  Receive Date: 20120507
  Receipt Date: 20100301
  Transmission Date: 20120825
  Serious: No
  Sender: FDA-Public Use
  Company Number: US-TEVA-2010000192

PATIENT
  Sex: Male
  Weight: 72.64 kg

DRUGS (2)
  1. RITUXAN [Concomitant]
     Indication: WALDENSTROM'S MACROGLOBULINAEMIA
     Dates: start: 20090801, end: 20091201
  2. TREANDA [Suspect]
     Indication: WALDENSTROM'S MACROGLOBULINAEMIA
     Route: 042
     Dates: start: 20090701, end: 20091218

REACTIONS (2)
  - PYREXIA [None]
  - INFUSION SITE INDURATION [None]
